FAERS Safety Report 6383182-4 (Version None)
Quarter: 2009Q3

REPORT INFORMATION
  Report Type: 
  Country: None (occurrence: None)
  Receive Date: 20090929
  Receipt Date: 20090914
  Transmission Date: 20100115
  Serious: Yes (Hospitalization)
  Sender: FDA-Public Use
  Company Number: 2008AL008838

PATIENT
  Age: 50 Year
  Sex: Male
  Weight: 107.9561 kg

DRUGS (21)
  1. DIGOXIN [Suspect]
     Indication: ATRIAL FIBRILLATION
     Dosage: 0.25MG, DAILY, PO
     Route: 048
     Dates: end: 20080513
  2. DIGOXIN [Suspect]
     Indication: TACHYCARDIA
     Dosage: 0.375MG, DAILY, PO
     Route: 048
     Dates: start: 20050825
  3. NADOLOL [Concomitant]
  4. FUROSEMIDE [Concomitant]
  5. JANTOVEN [Concomitant]
  6. LOVENOX [Concomitant]
  7. WARFARIN SODIUM [Concomitant]
  8. CYCLOBENZAPR [Concomitant]
  9. ACETAMINOPHEN AND HYDROCODONE BITARTRATE [Concomitant]
  10. AMOXICILLIN [Concomitant]
  11. CEFDINIR [Concomitant]
  12. CLARITHROMYC [Concomitant]
  13. ALBUTEROL [Concomitant]
  14. ZYPREXA [Concomitant]
  15. POTASSIUM CHLORIDE [Concomitant]
  16. SOMA [Concomitant]
  17. BETAPACE [Concomitant]
  18. LANOXIN [Concomitant]
  19. SOTALOL [Concomitant]
  20. TOPROL-XL [Concomitant]
  21. LIPITOR [Concomitant]

REACTIONS (11)
  - ATRIAL FIBRILLATION [None]
  - CARDIAC MURMUR [None]
  - DEPRESSION [None]
  - DYSLIPIDAEMIA [None]
  - DYSPNOEA [None]
  - HEART RATE IRREGULAR [None]
  - INSOMNIA [None]
  - JOINT SWELLING [None]
  - PNEUMONIA [None]
  - PRODUCTIVE COUGH [None]
  - TACHYCARDIA [None]
